FAERS Safety Report 24648027 (Version 1)
Quarter: 2024Q4

REPORT INFORMATION
  Report Type: Spontaneous
  Country: FR (occurrence: FR)
  Receive Date: 20241121
  Receipt Date: 20241121
  Transmission Date: 20250114
  Serious: Yes (Other)
  Sender: MYLAN
  Company Number: None

PATIENT
  Age: 80 Year
  Sex: Male
  Weight: 88 kg

DRUGS (2)
  1. REMIFENTANIL [Suspect]
     Active Substance: REMIFENTANIL
     Indication: Product used for unknown indication
     Dosage: UNKNOWN DOSE
     Route: 042
     Dates: start: 20240924, end: 20240924
  2. UMULINE [Suspect]
     Active Substance: INSULIN HUMAN
     Indication: Product used for unknown indication
     Dosage: 2 MILLIGRAM, 1DF
     Route: 042

REACTIONS (4)
  - Loss of consciousness [Recovered/Resolved]
  - Apnoea [Recovered/Resolved]
  - Bradycardia [Recovered/Resolved]
  - Product administration error [Recovered/Resolved]

NARRATIVE: CASE EVENT DATE: 20240924
